FAERS Safety Report 6553771-2 (Version None)
Quarter: 2010Q1

REPORT INFORMATION
  Report Type: 
  Country: None (occurrence: None)
  Receive Date: 20100125
  Receipt Date: 20100125
  Transmission Date: 20100710
  Serious: Yes (Death, Life-Threatening, Hospitalization, Disabling, Other)
  Sender: FDA-Public Use
  Company Number: None

PATIENT
  Age: 17 Year
  Sex: Male
  Weight: 81.6475 kg

DRUGS (10)
  1. GEODON [Suspect]
     Dosage: 100 GRAMS ONCE ORAL
     Route: 048
     Dates: start: 19850101
  2. NAVANE [Suspect]
  3. HALDOL [Suspect]
  4. PROLIXIN [Suspect]
  5. SEROQUEL [Suspect]
     Dosage: 100 GRAMS ONCE INTRAMUSCULAR
     Route: 030
     Dates: start: 20100101
  6. ZYPREXA [Suspect]
  7. STELAZINE [Suspect]
  8. TRILLIFON [Suspect]
  9. OBILIFY [Concomitant]
  10. CLONOPIN [Concomitant]

REACTIONS (12)
  - CONFUSIONAL STATE [None]
  - DRUG TOXICITY [None]
  - DYSPNOEA [None]
  - FEAR [None]
  - FEELING ABNORMAL [None]
  - INSOMNIA [None]
  - MYOCARDIAL INFARCTION [None]
  - PAIN [None]
  - SUICIDE ATTEMPT [None]
  - THINKING ABNORMAL [None]
  - TONGUE DISORDER [None]
  - WITHDRAWAL SYNDROME [None]
